FAERS Safety Report 14072098 (Version 2)
Quarter: 2018Q1

REPORT INFORMATION
  Report Type: Spontaneous
  Country: US (occurrence: US)
  Receive Date: 20171010
  Receipt Date: 20180105
  Transmission Date: 20180508
  Serious: No
  Sender: FDA-Public Use
  Company Number: US-SA-2017SA159332

PATIENT
  Sex: Female

DRUGS (1)
  1. DUPIXENT [Suspect]
     Active Substance: DUPILUMAB
     Indication: PRODUCT USED FOR UNKNOWN INDICATION
     Route: 058

REACTIONS (6)
  - Conjunctivitis [Unknown]
  - Photophobia [Unknown]
  - Ocular hyperaemia [Unknown]
  - Sleep disorder [Unknown]
  - Weight increased [Unknown]
  - Lacrimation increased [Unknown]
